FAERS Safety Report 8013756-6 (Version None)
Quarter: 2011Q4

REPORT INFORMATION
  Report Type: 
  Country: None (occurrence: None)
  Receive Date: 20111229
  Receipt Date: 20111216
  Transmission Date: 20120403
  Serious: Yes (Hospitalization, Other)
  Sender: FDA-Public Use
  Company Number: JP-ELI_LILLY_AND_COMPANY-JP201108005578

PATIENT
  Age: 67 Year
  Sex: Female

DRUGS (1)
  1. FORTEO [Suspect]
     Dosage: UNK
     Route: 058
     Dates: end: 20111101

REACTIONS (5)
  - LOWER LIMB FRACTURE [None]
  - BACTERIAL INFECTION [None]
  - INJECTION SITE HAEMATOMA [None]
  - CONSTIPATION [None]
  - ABDOMINAL PAIN UPPER [None]
